FAERS Safety Report 14256118 (Version 1)
Quarter: 2017Q4

REPORT INFORMATION
  Report Type: Spontaneous
  Country: US (occurrence: US)
  Receive Date: 20171206
  Receipt Date: 20171206
  Transmission Date: 20180321
  Serious: No
  Sender: FDA-Public Use
  Company Number: US-BAYER-2017-236328

PATIENT
  Age: 85 Year
  Sex: Male
  Weight: 76.96 kg

DRUGS (2)
  1. ANTACID [ALUMINIUM HYDROXIDE GEL,MAGNESIUM HYDROXIDE,SIMETICONE] [Concomitant]
  2. ALEVE [Suspect]
     Active Substance: NAPROXEN SODIUM
     Indication: PAIN
     Dosage: 2 DF, BID
     Route: 048
     Dates: start: 201711

REACTIONS (4)
  - Product use issue [Unknown]
  - Rash macular [Not Recovered/Not Resolved]
  - Incorrect dose administered [Unknown]
  - Off label use [Unknown]

NARRATIVE: CASE EVENT DATE: 201711
